FAERS Safety Report 7062087-X (Version None)
Quarter: 2010Q4

REPORT INFORMATION
  Report Type: 
  Country: None (occurrence: None)
  Receive Date: 20101026
  Receipt Date: 20101012
  Transmission Date: 20110411
  Serious: Yes (Hospitalization)
  Sender: FDA-Public Use
  Company Number: PHHY2010JP59542

PATIENT
  Sex: Male
  Weight: 50 kg

DRUGS (2)
  1. DIOVAN [Suspect]
     Indication: HYPERTENSION
     Dosage: 40 MG ONCE DAILY
     Route: 048
     Dates: start: 20071227, end: 20100105
  2. HERBESSOR R [Concomitant]
     Indication: HYPERTENSION
     Dosage: 100 MG
     Route: 048
     Dates: start: 20070309, end: 20100204

REACTIONS (4)
  - CARDIAC FAILURE [None]
  - HYPERTENSION [None]
  - HYPERURICAEMIA [None]
  - RENAL FUNCTION TEST ABNORMAL [None]
